FAERS Safety Report 7388288-9 (Version None)
Quarter: 2011Q2

REPORT INFORMATION
  Report Type: 
  Country: None (occurrence: None)
  Receive Date: 20110401
  Receipt Date: 20110318
  Transmission Date: 20111010
  Serious: Yes (Other)
  Sender: FDA-Public Use
  Company Number: US-ELI_LILLY_AND_COMPANY-US201102003128

PATIENT
  Age: 60 Year
  Sex: Female
  Weight: 77 kg

DRUGS (2)
  1. DULOXETINE HYDROCHLORIDE [Suspect]
     Dosage: 30 MG, DAILY (1/D)
     Route: 048
     Dates: start: 20101018, end: 20101019
  2. ULTRAM [Concomitant]

REACTIONS (1)
  - RASH MACULO-PAPULAR [None]
